FAERS Safety Report 19326961 (Version 2)
Quarter: 2021Q2

REPORT INFORMATION
  Report Type: Report from Study
  Country: ES (occurrence: ES)
  Receive Date: 20210528
  Receipt Date: 20210601
  Transmission Date: 20210717
  Serious: Yes (Hospitalization, Other)
  Sender: FDA-Public Use
  Company Number: ES-BAYER-2021-143852

PATIENT
  Sex: Female

DRUGS (1)
  1. REGORAFENIB. [Suspect]
     Active Substance: REGORAFENIB
     Indication: EWING^S SARCOMA
     Dosage: 80 MG

REACTIONS (1)
  - Sepsis [None]
